FAERS Safety Report 9875601 (Version 2)
Quarter: 2014Q1

REPORT INFORMATION
  Report Type: Other
  Country: US (occurrence: US)
  Receive Date: 20140206
  Receipt Date: 20140206
  Transmission Date: 20141002
  Serious: No
  Sender: FDA-Public Use
  Company Number: US-ACORDA-ACO_36714_2013

PATIENT
  Age: 60 Year
  Sex: Male
  Weight: 73.47 kg

DRUGS (3)
  1. AMPYRA [Suspect]
     Indication: GAIT DISTURBANCE
     Dosage: 10 MG, Q 12 HRS
     Route: 048
     Dates: start: 201210, end: 201212
  2. AMPYRA [Suspect]
     Dosage: 10 UNK, UNK
     Route: 048
     Dates: start: 201302
  3. TERIFLUNOMIDE [Concomitant]
     Indication: PRODUCT USED FOR UNKNOWN INDICATION
     Dosage: UNK,UNK
     Route: 065
     Dates: start: 2012

REACTIONS (2)
  - Mobility decreased [Recovering/Resolving]
  - Drug effect decreased [Not Recovered/Not Resolved]
